FAERS Safety Report 23570685 (Version 3)
Quarter: 2024Q2

REPORT INFORMATION
  Report Type: Spontaneous
  Country: US (occurrence: US)
  Receive Date: 20240227
  Receipt Date: 20240502
  Transmission Date: 20240716
  Serious: Yes (Other)
  Sender: FDA-Public Use
  Company Number: US-AMERICAN REGENT INC-2024000644

PATIENT
  Sex: Female

DRUGS (4)
  1. FERRIC CARBOXYMALTOSE [Suspect]
     Active Substance: FERRIC CARBOXYMALTOSE
     Indication: Anaemia
     Dosage: 500 MILLIGRAM, SINGLE
     Route: 042
     Dates: start: 20221104, end: 20221104
  2. FERRIC CARBOXYMALTOSE [Suspect]
     Active Substance: FERRIC CARBOXYMALTOSE
     Indication: Serum ferritin decreased
     Dosage: UNK, SINGLE
     Route: 042
     Dates: start: 20230313, end: 20230313
  3. FERRIC CARBOXYMALTOSE [Suspect]
     Active Substance: FERRIC CARBOXYMALTOSE
     Dosage: UNK, SINGLE
     Route: 042
     Dates: start: 20240131, end: 20240131
  4. VITAMIN D NOS [Concomitant]
     Active Substance: VITAMIN D NOS
     Indication: Product used for unknown indication
     Dosage: 5000 INTERNATIONAL UNIT, QD
     Route: 065
     Dates: start: 202401

REACTIONS (9)
  - Limb discomfort [Recovering/Resolving]
  - Chest discomfort [Recovering/Resolving]
  - Myalgia [Recovering/Resolving]
  - Nausea [Recovering/Resolving]
  - Vomiting [Recovering/Resolving]
  - Headache [Recovering/Resolving]
  - Blood phosphorus decreased [Unknown]
  - Ill-defined disorder [Recovering/Resolving]
  - Off label use [Unknown]

NARRATIVE: CASE EVENT DATE: 20220101
